FAERS Safety Report 9800914 (Version 2)
Quarter: 2014Q1

REPORT INFORMATION
  Report Type: Report from Study
  Country: US (occurrence: US)
  Receive Date: 20140107
  Receipt Date: 20140205
  Transmission Date: 20141002
  Serious: No
  Sender: FDA-Public Use
  Company Number: US-JNJFOC-20140101360

PATIENT
  Age: 66 Year
  Sex: Female

DRUGS (1)
  1. DURAGESIC [Suspect]
     Indication: PRODUCT USED FOR UNKNOWN INDICATION
     Dosage: 15 PATCHES OF 50UG/HR AND 15 PATCHES OF 100 UG/HR PER MONTH
     Route: 062
     Dates: start: 200912

REACTIONS (4)
  - Muscle spasms [Unknown]
  - Drug dose omission [Recovered/Resolved]
  - Nausea [Unknown]
  - Pain [Unknown]
